FAERS Safety Report 12655009 (Version 1)
Quarter: 2016Q3

REPORT INFORMATION
  Report Type: Spontaneous
  Country: TR (occurrence: TR)
  Receive Date: 20160816
  Receipt Date: 20160816
  Transmission Date: 20161109
  Serious: Yes (Other)
  Sender: FDA-Public Use
  Company Number: TR-CELLTRION HEALTHCARE HUNGARY KFT-2016TR006183

PATIENT

DRUGS (3)
  1. REMSIMA [Suspect]
     Active Substance: INFLIXIMAB
     Dosage: UNK
     Route: 042
     Dates: start: 20160428, end: 20160428
  2. DICLOFENAC                         /00372302/ [Concomitant]
     Active Substance: DICLOFENAC
     Dosage: 150 MG, DAILY
     Route: 065
  3. REMSIMA [Suspect]
     Active Substance: INFLIXIMAB
     Indication: ANKYLOSING SPONDYLITIS
     Dosage: UNK
     Route: 042
     Dates: start: 20160114, end: 20160114

REACTIONS (2)
  - Axillary mass [Unknown]
  - Breast mass [Unknown]
